FAERS Safety Report 10269752 (Version 1)
Quarter: 2014Q2

REPORT INFORMATION
  Report Type: Spontaneous
  Country: GB (occurrence: None)
  Receive Date: 20140625
  Receipt Date: 20140625
  Transmission Date: 20141212
  Serious: Yes (Other)
  Sender: FDA-Public Use
  Company Number: AUR-APL-2014-06576

PATIENT
  Sex: 0

DRUGS (2)
  1. FLUCONAZOLE [Suspect]
     Indication: SYSTEMIC CANDIDA
     Route: 048
  2. VFEND (VORICONAZOLE) INFUSION [Suspect]
     Indication: SYSTEMIC CANDIDA

REACTIONS (2)
  - Neutropenia [None]
  - Off label use [None]
